FAERS Safety Report 14419458 (Version 2)
Quarter: 2018Q1

REPORT INFORMATION
  Report Type: Spontaneous
  Country: US (occurrence: US)
  Receive Date: 20180122
  Receipt Date: 20180308
  Transmission Date: 20180509
  Serious: Yes (Other)
  Sender: FDA-Public Use
  Company Number: US-SA-2017SA199114

PATIENT
  Sex: Female

DRUGS (1)
  1. ACT DRY MOUTH LOZENGES [Suspect]
     Active Substance: XYLITOL
     Indication: DRY MOUTH
     Route: 065

REACTIONS (4)
  - Oral pain [Unknown]
  - Eustachian tube disorder [Unknown]
  - Blister [Unknown]
  - Deafness [Recovered/Resolved]
